FAERS Safety Report 20987798 (Version 1)
Quarter: 2022Q2

REPORT INFORMATION
  Report Type: Spontaneous
  Country: CN (occurrence: CN)
  Receive Date: 20220621
  Receipt Date: 20220621
  Transmission Date: 20220720
  Serious: Yes (Life-Threatening, Other)
  Sender: FDA-Public Use
  Company Number: CN-BAXTER-2022BAX012501

PATIENT
  Age: 28 Year
  Sex: Male

DRUGS (13)
  1. CYCLOPHOSPHAMIDE [Suspect]
     Active Substance: CYCLOPHOSPHAMIDE
     Indication: Diffuse large B-cell lymphoma
     Dosage: R-DA-EPOCH
     Route: 065
     Dates: start: 201807, end: 201807
  2. IFOSFAMIDE [Suspect]
     Active Substance: IFOSFAMIDE
     Indication: Diffuse large B-cell lymphoma
     Dosage: RICE
     Route: 065
     Dates: start: 201808, end: 201810
  3. DOXORUBICIN [Suspect]
     Active Substance: DOXORUBICIN
     Indication: Diffuse large B-cell lymphoma
     Dosage: R-DA-EPOCH
     Route: 065
     Dates: start: 201807, end: 201807
  4. VINCRISTINE [Suspect]
     Active Substance: VINCRISTINE
     Indication: Diffuse large B-cell lymphoma
     Dosage: R-DA-EPOCH
     Route: 065
     Dates: start: 201807, end: 201807
  5. CARBOPLATIN [Suspect]
     Active Substance: CARBOPLATIN
     Indication: Diffuse large B-cell lymphoma
     Dosage: RICE
     Route: 065
     Dates: start: 201808, end: 201810
  6. RITUXIMAB [Suspect]
     Active Substance: RITUXIMAB
     Indication: Diffuse large B-cell lymphoma
     Dosage: RICE
     Route: 065
     Dates: start: 201808, end: 201810
  7. RITUXIMAB [Suspect]
     Active Substance: RITUXIMAB
     Dosage: R-DA-EPOCH
     Route: 065
     Dates: start: 201808, end: 201810
  8. ETOPOSIDE [Suspect]
     Active Substance: ETOPOSIDE
     Indication: Diffuse large B-cell lymphoma
     Dosage: RICE
     Route: 065
     Dates: start: 201808, end: 201810
  9. ETOPOSIDE [Suspect]
     Active Substance: ETOPOSIDE
     Dosage: UNK
     Route: 065
     Dates: start: 201807, end: 201807
  10. PREDNISONE [Suspect]
     Active Substance: PREDNISONE
     Indication: Diffuse large B-cell lymphoma
     Dosage: R-DA-EPOCH
     Route: 065
     Dates: start: 201807, end: 201807
  11. EMTRICITABINE [Concomitant]
     Active Substance: EMTRICITABINE
     Indication: HIV infection
     Route: 065
     Dates: start: 201806
  12. VIREAD [Concomitant]
     Active Substance: TENOFOVIR DISOPROXIL FUMARATE
     Indication: HIV infection
     Route: 065
     Dates: start: 201806
  13. DOLUTEGRAVIR [Concomitant]
     Active Substance: DOLUTEGRAVIR
     Indication: HIV infection
     Route: 065
     Dates: start: 201806

REACTIONS (4)
  - Treatment failure [Unknown]
  - Treatment failure [Unknown]
  - Myelosuppression [Recovered/Resolved]
  - Bacterial infection [Recovered/Resolved]

NARRATIVE: CASE EVENT DATE: 20180101
